FAERS Safety Report 10244210 (Version 1)
Quarter: 2014Q2

REPORT INFORMATION
  Report Type: Spontaneous
  Country: US (occurrence: None)
  Receive Date: 20140616
  Receipt Date: 20140616
  Transmission Date: 20141212
  Serious: Yes (Other)
  Sender: FDA-Public Use
  Company Number: None

PATIENT
  Age: 56 Year
  Sex: Female
  Weight: 72.12 kg

DRUGS (1)
  1. HYDROCODON ACETAMINOPHEN 5-500 [Suspect]
     Indication: POSTOPERATIVE ANALGESIA
     Dosage: 1-2 TABS Q 4-6 HRS. TAKEN BY MOUTH
     Route: 048
     Dates: start: 20140612, end: 20140612

REACTIONS (4)
  - Drug ineffective [None]
  - Product substitution issue [None]
  - Product formulation issue [None]
  - Product quality issue [None]
